FAERS Safety Report 11100578 (Version 2)
Quarter: 2015Q3

REPORT INFORMATION
  Report Type: Spontaneous
  Country: US (occurrence: US)
  Receive Date: 20150508
  Receipt Date: 20150703
  Transmission Date: 20151125
  Serious: Yes (Hospitalization)
  Sender: FDA-Public Use
  Company Number: US-SA-2014SA179439

PATIENT
  Age: 80 Year
  Sex: Male

DRUGS (6)
  1. SOLOSTAR [Concomitant]
     Active Substance: DEVICE
  2. NOVOLOG [Concomitant]
     Active Substance: INSULIN ASPART
  3. LANTUS SOLOSTAR [Suspect]
     Active Substance: INSULIN GLARGINE
     Indication: TYPE 2 DIABETES MELLITUS
     Dosage: DOSE:35 UNIT(S)
     Route: 065
  4. SOLOSTAR [Concomitant]
     Active Substance: DEVICE
  5. LANTUS SOLOSTAR [Suspect]
     Active Substance: INSULIN GLARGINE
     Indication: TYPE 2 DIABETES MELLITUS
     Dosage: DOSE:43 UNIT(S)
     Route: 065
  6. GLIPIZIDE. [Concomitant]
     Active Substance: GLIPIZIDE

REACTIONS (6)
  - Blood glucose increased [Not Recovered/Not Resolved]
  - Fall [Unknown]
  - Visual impairment [Unknown]
  - Hypokinesia [Unknown]
  - Subdural haematoma [Unknown]
  - Spinal column injury [Unknown]

NARRATIVE: CASE EVENT DATE: 201501
